FAERS Safety Report 13081004 (Version 2)
Quarter: 2017Q1

REPORT INFORMATION
  Report Type: Report from Study
  Country: HT (occurrence: HT)
  Receive Date: 20170103
  Receipt Date: 20170131
  Transmission Date: 20170428
  Serious: Yes (Other)
  Sender: FDA-Public Use
  Company Number: HT-BRISTOL-MYERS SQUIBB COMPANY-BMS-2016-111282

PATIENT
  Age: 39 Year
  Sex: Female

DRUGS (2)
  1. ATAZANAVIR SULFATE [Suspect]
     Active Substance: ATAZANAVIR SULFATE
     Indication: HIV INFECTION
     Dosage: 400 MG, QD
     Route: 048
     Dates: start: 20151119
  2. TRUVADA [Suspect]
     Active Substance: EMTRICITABINE\TENOFOVIR DISOPROXIL FUMARATE
     Indication: HIV INFECTION
     Dosage: 500 MG, QD
     Route: 048
     Dates: start: 20151119

REACTIONS (3)
  - Maternal exposure during pregnancy [Recovered/Resolved]
  - Stillbirth [Unknown]
  - Product use issue [Unknown]
